FAERS Safety Report 4807008-2 (Version None)
Quarter: 2005Q4

REPORT INFORMATION
  Report Type: 
  Country: None (occurrence: None)
  Receive Date: 20051024
  Receipt Date: 20051012
  Transmission Date: 20060501
  Serious: Yes (Other)
  Sender: FDA-Public Use
  Company Number: US-JNJFOC-20050903170

PATIENT
  Sex: Female
  Weight: 75 kg

DRUGS (9)
  1. BLINDED; ABCIXIMA [Suspect]
     Dosage: 16 ML/HR OVER 12 HOURS
     Route: 042
  2. BLINDED; ABCIXIMA [Suspect]
     Route: 042
  3. PLACEBO [Suspect]
     Dosage: 16 ML/HR OVER 12 HOURS
     Route: 042
  4. PLACEBO [Suspect]
     Route: 042
  5. PEPCID [Concomitant]
  6. ZOFRAN [Concomitant]
     Dosage: AS NEEDED
     Route: 042
  7. PLAVIX [Concomitant]
     Route: 048
  8. PROTONIX [Concomitant]
     Route: 048
  9. LABETALOL [Concomitant]
     Indication: HYPERTENSION
     Route: 042

REACTIONS (5)
  - CEREBROVASCULAR ACCIDENT [None]
  - DRUG INTERACTION [None]
  - HYPERTENSION [None]
  - ISCHAEMIC STROKE [None]
  - LACUNAR INFARCTION [None]
